FAERS Safety Report 5428264-6 (Version None)
Quarter: 2007Q3

REPORT INFORMATION
  Report Type: 
  Country: None (occurrence: None)
  Receive Date: 20070828
  Receipt Date: 20070816
  Transmission Date: 20080115
  Serious: Yes (Other)
  Sender: FDA-Public Use
  Company Number: US-PFIZER INC-2007069577

PATIENT
  Sex: Female
  Weight: 40.454 kg

DRUGS (1)
  1. LYRICA [Suspect]
     Indication: FIBROMYALGIA

REACTIONS (1)
  - JOINT SWELLING [None]
